FAERS Safety Report 7929900-2 (Version None)
Quarter: 2011Q4

REPORT INFORMATION
  Report Type: 
  Country: None (occurrence: None)
  Receive Date: 20111116
  Receipt Date: 20111101
  Transmission Date: 20120403
  Serious: Yes (Hospitalization, Other)
  Sender: FDA-Public Use
  Company Number: JPI-P-013009

PATIENT
  Age: 74 Year
  Sex: Female

DRUGS (24)
  1. FUROSEMIDE [Concomitant]
  2. FLUTICASONE PROPIONATE [Concomitant]
  3. METHYLPHENIDATE HCL [Concomitant]
  4. ARTIFICIAL TEARS [Concomitant]
  5. POTASSIUM CHLORIDE [Concomitant]
  6. MILK OF MAGNESIUM [Concomitant]
  7. XYREM [Suspect]
     Indication: SLEEP DISORDER
     Dosage: SEE IMAGE
     Route: 048
     Dates: start: 20040107
  8. XYREM [Suspect]
     Indication: NARCOLEPSY
     Dosage: SEE IMAGE
     Route: 048
     Dates: start: 20040107
  9. XYREM [Suspect]
     Indication: SLEEP DISORDER
     Dosage: SEE IMAGE
     Route: 048
     Dates: start: 20090716
  10. XYREM [Suspect]
     Indication: NARCOLEPSY
     Dosage: SEE IMAGE
     Route: 048
     Dates: start: 20090716
  11. XYREM [Suspect]
     Indication: SLEEP DISORDER
     Dosage: SEE IMAGE
     Route: 048
     Dates: start: 20110101
  12. XYREM [Suspect]
     Indication: NARCOLEPSY
     Dosage: SEE IMAGE
     Route: 048
     Dates: start: 20110101
  13. CYCLOSPORINE [Concomitant]
  14. ASPIRIN [Concomitant]
  15. DOCUSATE AND SENNA [Concomitant]
  16. VENLAFAXINE HCL [Concomitant]
  17. POLYETHYLENE GLYCOL [Concomitant]
  18. LEVOTHYROXINE SODIUM [Concomitant]
  19. OMEPRAZOLE [Concomitant]
  20. MULTI-VITAMINS [Concomitant]
  21. METHAMPHETAMINE HYDROCHLORIDE [Concomitant]
  22. CALCIUM AND VITAMIN D [Concomitant]
  23. RED LABEL ANTIGEN SL AND BLUE LABEL ANTIGEN SL [Concomitant]
  24. VITAMIN B12 SHOT [Concomitant]

REACTIONS (6)
  - FALL [None]
  - WEIGHT DECREASED [None]
  - FEMUR FRACTURE [None]
  - LOWER LIMB FRACTURE [None]
  - HEAD INJURY [None]
  - PARANOIA [None]
